FAERS Safety Report 6383237-4 (Version None)
Quarter: 2009Q3

REPORT INFORMATION
  Report Type: 
  Country: None (occurrence: None)
  Receive Date: 20090929
  Receipt Date: 20090922
  Transmission Date: 20100115
  Serious: Yes (Life-Threatening, Hospitalization, Other)
  Sender: FDA-Public Use
  Company Number: CLOF-1000683

PATIENT
  Age: 9 Year
  Sex: Male
  Weight: 29.1 kg

DRUGS (8)
  1. CLOLAR [Suspect]
     Indication: ACUTE MYELOID LEUKAEMIA
     Dosage: 55 MG, QDX5, INTRAVENOUS
     Route: 042
     Dates: start: 20090630, end: 20090704
  2. CYTARABINE [Suspect]
     Indication: ACUTE MYELOID LEUKAEMIA
     Dosage: 1000 MG, QDX5, INTRAVENOUS; 105 MG, QD, INTRAVENOUS
     Route: 042
     Dates: start: 20090630, end: 20090704
  3. CYTARABINE [Suspect]
     Indication: ACUTE MYELOID LEUKAEMIA
     Dosage: 1000 MG, QDX5, INTRAVENOUS; 105 MG, QD, INTRAVENOUS
     Route: 042
     Dates: start: 20090722, end: 20090729
  4. ETOPOSIDE [Suspect]
     Indication: ACUTE MYELOID LEUKAEMIA
     Dosage: 105 MG, QDX5, INTRAVENOUS
     Route: 042
     Dates: start: 20090722, end: 20090729
  5. DAUNORUBICIN HCL [Suspect]
     Indication: ACUTE MYELOID LEUKAEMIA
     Dosage: 52.5 MG, QODX3, INTRAVENOUS
     Route: 042
     Dates: start: 20090724, end: 20090728
  6. SORAFENIB (SORAFENIB) [Suspect]
     Indication: ACUTE MYELOID LEUKAEMIA
     Dosage: 200 MG BID, ORAL
     Route: 048
     Dates: start: 20090730, end: 20090810
  7. CIPROFLOXACIN [Concomitant]
  8. MICAFUNGIN (MICAFUNGIN) [Concomitant]

REACTIONS (18)
  - ACIDOSIS [None]
  - ACUTE RESPIRATORY DISTRESS SYNDROME [None]
  - ALANINE AMINOTRANSFERASE INCREASED [None]
  - ASPARTATE AMINOTRANSFERASE INCREASED [None]
  - CAPILLARY PERMEABILITY INCREASED [None]
  - CONTINUOUS HAEMODIAFILTRATION [None]
  - DISSEMINATED INTRAVASCULAR COAGULATION [None]
  - FLUID OVERLOAD [None]
  - HYPERBILIRUBINAEMIA [None]
  - MULTI-ORGAN FAILURE [None]
  - NEUTROPENIA [None]
  - PETECHIAE [None]
  - PULMONARY HYPERTENSION [None]
  - RASH PAPULAR [None]
  - RENAL FAILURE [None]
  - RESPIRATORY DISTRESS [None]
  - SEPSIS [None]
  - TRANSFUSION REACTION [None]
